FAERS Safety Report 7993927-5 (Version None)
Quarter: 2011Q4

REPORT INFORMATION
  Report Type: 
  Country: None (occurrence: None)
  Receive Date: 20111215
  Receipt Date: 20111208
  Transmission Date: 20120403
  Serious: Yes (Life-Threatening, Hospitalization, Other)
  Sender: FDA-Public Use
  Company Number: AUR-APL-2011-05951

PATIENT
  Age: 80 Year
  Sex: Female

DRUGS (8)
  1. CITALOPRAM HYDROBROMIDE [Suspect]
     Indication: DEPRESSION
     Dosage: (40 MG) , ORAL
     Route: 048
     Dates: start: 20000101, end: 20111108
  2. ATENOLOL [Concomitant]
  3. CARBOMER 980 (CARBOMER) [Concomitant]
  4. PRAVASTATIN [Concomitant]
  5. TEMAZEPAM [Concomitant]
  6. ACETAMINOPHEN W/ CODEINE [Concomitant]
  7. TAFLUPROST (TAFLUPROST) [Concomitant]
  8. LANSOPRAZOLE [Concomitant]

REACTIONS (5)
  - HYPOVOLAEMIA [None]
  - MELAENA [None]
  - DIZZINESS [None]
  - HAEMATEMESIS [None]
  - GASTROINTESTINAL HAEMORRHAGE [None]
